FAERS Safety Report 9700661 (Version 1)
Quarter: 2013Q4

REPORT INFORMATION
  Report Type: Spontaneous
  Country: US (occurrence: None)
  Receive Date: 20131119
  Receipt Date: 20131119
  Transmission Date: 20140711
  Serious: Yes (Hospitalization)
  Sender: FDA-Public Use
  Company Number: GB-DEXPHARM-20130955

PATIENT
  Age: 71 Year
  Sex: Female

DRUGS (12)
  1. CITALOPRAM [Suspect]
     Indication: DEPRESSION
     Dosage: 20 MG MILLIGRAM(S) SEP DOSAGES/INTERVAL: 1 IN 1 DAYS
     Route: 048
     Dates: start: 20131004, end: 20131030
  2. OMEPRAZOLE [Suspect]
     Indication: HYPONATRAEMIA
     Route: 048
  3. OMEPRAZOLE [Suspect]
     Indication: HYPOKALAEMIA
     Route: 048
  4. OMEPRAZOLE [Suspect]
     Indication: HALLUCINATION
     Route: 048
  5. OMEPRAZOLE [Suspect]
     Indication: DIARRHOEA
     Route: 048
  6. ENALAPRIL [Suspect]
     Indication: HYPONATRAEMIA
  7. ENALAPRIL [Suspect]
     Indication: HYPOKALAEMIA
  8. ENALAPRIL [Suspect]
     Indication: HALLUCINATION
  9. ENALAPRIL [Suspect]
     Indication: DIARRHOEA
  10. BENDROFLUMETHIAZIDE [Suspect]
     Dosage: RECENTLY DISCONTINUED AND SWITCHED TO OMEPRAZOLE
  11. LANSOPRAZOLE [Suspect]
  12. ORAMORPH [Concomitant]

REACTIONS (5)
  - Hallucination [None]
  - Hypokalaemia [None]
  - Hyponatraemia [None]
  - Diarrhoea [None]
  - Electrolyte imbalance [None]
